FAERS Safety Report 19835195 (Version 4)
Quarter: 2022Q1

REPORT INFORMATION
  Report Type: Spontaneous
  Country: US (occurrence: US)
  Receive Date: 20210915
  Receipt Date: 20220321
  Transmission Date: 20220423
  Serious: Yes (Death, Other)
  Sender: FDA-Public Use
  Company Number: US-PFIZER INC-202101022859

PATIENT
  Age: 77 Year
  Sex: Male
  Weight: 73.12 kg

DRUGS (1)
  1. VYNDAMAX [Suspect]
     Active Substance: TAFAMIDIS
     Indication: Amyloidosis
     Dosage: 61 MG, 1X/DAY (AT NIGHT)

REACTIONS (5)
  - Death [Fatal]
  - Cataract [Unknown]
  - Dyspnoea [Unknown]
  - Malaise [Unknown]
  - Off label use [Unknown]
